FAERS Safety Report 9696241 (Version 1)
Quarter: 2013Q4

REPORT INFORMATION
  Report Type: Spontaneous
  Country: CA (occurrence: CA)
  Receive Date: 20131119
  Receipt Date: 20131119
  Transmission Date: 20140711
  Serious: Yes (Other)
  Sender: FDA-Public Use
  Company Number: CA-ASTRAZENECA-2013SE83315

PATIENT
  Age: 54 Year
  Sex: Male
  Weight: 91 kg

DRUGS (5)
  1. CRESTOR [Suspect]
     Route: 048
  2. ACCOLATE [Concomitant]
  3. ALVESCO [Concomitant]
  4. APO-FLUTICASONE [Concomitant]
  5. FAMCICLOVIR [Concomitant]

REACTIONS (7)
  - Coordination abnormal [Not Recovered/Not Resolved]
  - Gait disturbance [Not Recovered/Not Resolved]
  - Irritability [Not Recovered/Not Resolved]
  - Sensation of heaviness [Not Recovered/Not Resolved]
  - Depressed mood [Not Recovered/Not Resolved]
  - Muscular weakness [Not Recovered/Not Resolved]
  - Asthenia [Not Recovered/Not Resolved]
